FAERS Safety Report 5604079-0 (Version None)
Quarter: 2008Q1

REPORT INFORMATION
  Report Type: 
  Country: None (occurrence: None)
  Receive Date: 20080123
  Receipt Date: 20080123
  Transmission Date: 20080703
  Serious: No
  Sender: FDA-Public Use
  Company Number: None

PATIENT
  Age: 54 Year
  Sex: Female
  Weight: 49.8957 kg

DRUGS (4)
  1. AVELOX [Suspect]
     Indication: PNEUMONIA
     Dosage: 1 TABLET  QD  PO
     Route: 048
     Dates: start: 20070621, end: 20070630
  2. AVELOX [Suspect]
     Indication: PROPHYLAXIS
     Dosage: 1 TABLET  QD  PO
     Route: 048
     Dates: start: 20070621, end: 20070630
  3. AVELOX [Suspect]
     Indication: PNEUMONIA
     Dosage: 1 TABLET  QD  PO
     Route: 048
     Dates: start: 20070904, end: 20070911
  4. AVELOX [Suspect]
     Indication: PROPHYLAXIS
     Dosage: 1 TABLET  QD  PO
     Route: 048
     Dates: start: 20070904, end: 20070911

REACTIONS (6)
  - DRUG TOXICITY [None]
  - NERVOUS SYSTEM DISORDER [None]
  - NUCLEAR MAGNETIC RESONANCE IMAGING BRAIN ABNORMAL [None]
  - PHOTOSENSITIVITY REACTION [None]
  - PSITTACOSIS [None]
  - VISUAL DISTURBANCE [None]
